FAERS Safety Report 18669566 (Version 1)
Quarter: 2020Q4

REPORT INFORMATION
  Report Type: Spontaneous
  Country: US (occurrence: US)
  Receive Date: 20201228
  Receipt Date: 20201228
  Transmission Date: 20210114
  Serious: No
  Sender: FDA-Public Use
  Company Number: NVSC2020US341465

PATIENT

DRUGS (2)
  1. ALPRAZOLAM TABLETS USP [Suspect]
     Active Substance: ALPRAZOLAM
     Indication: PRODUCT USED FOR UNKNOWN INDICATION
     Dosage: 6 MG, QD
     Route: 065
  2. PARNATE [Suspect]
     Active Substance: TRANYLCYPROMINE SULFATE
     Indication: PRODUCT USED FOR UNKNOWN INDICATION
     Dosage: 60 MG, UNKNOWN
     Route: 065

REACTIONS (3)
  - Product dose omission issue [Unknown]
  - Illness [Unknown]
  - Product packaging issue [Unknown]
